FAERS Safety Report 4691202-8 (Version None)
Quarter: 2005Q2

REPORT INFORMATION
  Report Type: 
  Country: None (occurrence: None)
  Receive Date: 20050610
  Receipt Date: 20050602
  Transmission Date: 20051028
  Serious: Yes (Hospitalization, Other)
  Sender: FDA-Public Use
  Company Number: USA-2003-0010603

PATIENT
  Sex: Female
  Weight: 90.2 kg

DRUGS (12)
  1. OXYCONTIN [Suspect]
     Indication: PAIN
     Dosage: 20 MG DAILY
  2. PIROXICAM [Concomitant]
  3. COLACE [Concomitant]
  4. POTASSIUM CHLORIDE [Concomitant]
  5. ZOCOR [Concomitant]
  6. HYDROCHLOROTHIAZIDE [Concomitant]
  7. CLARINEX [Concomitant]
  8. NIFEDIPINE [Concomitant]
  9. PERI-COLACE (DOCUSATE SODIUM, SENNOSIDE A+B) [Concomitant]
  10. HYDROCODONE BITARTRATE [Concomitant]
  11. METOPROLOL TARTRATE [Concomitant]
  12. ASPIRIN [Concomitant]

REACTIONS (32)
  - ABDOMINAL PAIN [None]
  - ANXIETY [None]
  - ARTHRALGIA [None]
  - BALANCE DISORDER [None]
  - BURNING SENSATION [None]
  - CONSTIPATION [None]
  - CYSTITIS [None]
  - DEPRESSED MOOD [None]
  - DEPRESSION [None]
  - DIFFICULTY IN WALKING [None]
  - DRUG DEPENDENCE [None]
  - DRUG INEFFECTIVE [None]
  - DRUG TOLERANCE [None]
  - DRUG WITHDRAWAL SYNDROME [None]
  - DYSPNOEA EXERTIONAL [None]
  - ENTEROCOCCAL INFECTION [None]
  - FALL [None]
  - FEMUR FRACTURE [None]
  - GAIT DISTURBANCE [None]
  - HAEMATOCRIT DECREASED [None]
  - HEADACHE [None]
  - HYPOKALAEMIA [None]
  - HYPOTENSION [None]
  - NAIL DYSTROPHY [None]
  - NAUSEA [None]
  - ONYCHOMYCOSIS [None]
  - PAIN [None]
  - PAIN IN EXTREMITY [None]
  - RENAL FAILURE ACUTE [None]
  - TEETH BRITTLE [None]
  - TINNITUS [None]
  - URINARY TRACT INFECTION [None]
